FAERS Safety Report 11322805 (Version 3)
Quarter: 2015Q3

REPORT INFORMATION
  Report Type: Report from Study
  Country: GB (occurrence: GB)
  Receive Date: 20150730
  Receipt Date: 20150821
  Transmission Date: 20151125
  Serious: Yes (Hospitalization, Other)
  Sender: FDA-Public Use
  Company Number: PHFR2015GB005564

PATIENT
  Age: 59 Year
  Sex: Female
  Weight: 45 kg

DRUGS (10)
  1. AFINITOR [Suspect]
     Active Substance: EVEROLIMUS
     Dosage: 10 MG, QD
     Route: 048
     Dates: end: 20150713
  2. LANSOPRAZOLE. [Suspect]
     Active Substance: LANSOPRAZOLE
     Indication: PRODUCT USED FOR UNKNOWN INDICATION
     Dosage: 30 MG, QD
     Route: 048
  3. PREGABALIN. [Suspect]
     Active Substance: PREGABALIN
     Indication: PRODUCT USED FOR UNKNOWN INDICATION
     Dosage: 25 MG, QD
     Route: 048
  4. DOMPERIDONE [Suspect]
     Active Substance: DOMPERIDONE
     Indication: PRODUCT USED FOR UNKNOWN INDICATION
     Dosage: 10 MG, QD
     Route: 048
  5. DOCUSATE [Suspect]
     Active Substance: DOCUSATE
     Indication: PRODUCT USED FOR UNKNOWN INDICATION
     Dosage: 200 MG, QD
     Route: 048
  6. ORAMORPH [Concomitant]
     Active Substance: MORPHINE SULFATE
     Indication: PRODUCT USED FOR UNKNOWN INDICATION
     Dosage: 10 MG, QD
     Route: 048
  7. INSULIN HUMAN [Concomitant]
     Active Substance: INSULIN HUMAN
     Indication: PRODUCT USED FOR UNKNOWN INDICATION
     Dosage: 10 U, QD (AM, INJECTION PM)
     Route: 058
  8. FENTANYL. [Concomitant]
     Active Substance: FENTANYL
     Indication: PRODUCT USED FOR UNKNOWN INDICATION
     Dosage: 37.5 MG, QD
     Route: 065
  9. PARACETAMOL [Concomitant]
     Active Substance: ACETAMINOPHEN
     Indication: PRODUCT USED FOR UNKNOWN INDICATION
     Dosage: 1 G, QD
     Route: 048
  10. LACTULOSE. [Concomitant]
     Active Substance: LACTULOSE
     Indication: PRODUCT USED FOR UNKNOWN INDICATION
     Dosage: 15 ML, QD
     Route: 048

REACTIONS (26)
  - Pyrexia [Recovered/Resolved]
  - Neutrophil count increased [Recovering/Resolving]
  - Protein total decreased [Recovering/Resolving]
  - Blood magnesium decreased [Recovering/Resolving]
  - Eosinophil count decreased [Recovered/Resolved]
  - Malaise [Recovered/Resolved]
  - Chills [Recovered/Resolved]
  - Ascites [Not Recovered/Not Resolved]
  - Haematocrit decreased [Recovered/Resolved]
  - C-reactive protein increased [Recovering/Resolving]
  - Splenomegaly [Not Recovered/Not Resolved]
  - Lymphocyte count decreased [Recovered/Resolved]
  - Haemoglobin decreased [Recovered/Resolved]
  - Pancreatic neoplasm [Not Recovered/Not Resolved]
  - Mean cell haemoglobin concentration decreased [Recovering/Resolving]
  - Cardiomegaly [Recovering/Resolving]
  - Atelectasis [Recovering/Resolving]
  - Abdominal pain upper [Recovered/Resolved]
  - Blood albumin decreased [Recovering/Resolving]
  - Blood creatinine increased [Recovering/Resolving]
  - Blood alkaline phosphatase increased [Recovering/Resolving]
  - Mean cell volume decreased [Recovering/Resolving]
  - Hepatic lesion [Not Recovered/Not Resolved]
  - White blood cell count increased [Recovering/Resolving]
  - Mean cell haemoglobin decreased [Recovering/Resolving]
  - Red blood cell count decreased [Recovered/Resolved]

NARRATIVE: CASE EVENT DATE: 20150713
